FAERS Safety Report 6639349-0 (Version None)
Quarter: 2010Q1

REPORT INFORMATION
  Report Type: 
  Country: None (occurrence: None)
  Receive Date: 20100315
  Receipt Date: 20100225
  Transmission Date: 20100710
  Serious: Yes (Death)
  Sender: FDA-Public Use
  Company Number: 2010VX000075

PATIENT
  Age: 38 Year
  Sex: Male

DRUGS (4)
  1. DIASTAT [Suspect]
     Indication: DRUG USE FOR UNKNOWN INDICATION
  2. AMITRIPTYLINE [Suspect]
     Indication: DRUG USE FOR UNKNOWN INDICATION
  3. TRAMADOL HCL [Suspect]
     Indication: DRUG USE FOR UNKNOWN INDICATION
  4. METHAMPHETAMINE HYDROCHLORIDE [Suspect]
     Indication: DRUG USE FOR UNKNOWN INDICATION

REACTIONS (6)
  - CARDIAC ARREST [None]
  - COMPLETED SUICIDE [None]
  - LOSS OF CONSCIOUSNESS [None]
  - OVERDOSE [None]
  - POISONING [None]
  - VENTRICULAR TACHYCARDIA [None]
